FAERS Safety Report 10243012 (Version 2)
Quarter: 2014Q2

REPORT INFORMATION
  Report Type: Spontaneous
  Country: US (occurrence: US)
  Receive Date: 20140618
  Receipt Date: 20140618
  Transmission Date: 20141212
  Serious: Yes (Hospitalization)
  Sender: FDA-Public Use
  Company Number: US-BRISTOL-MYERS SQUIBB COMPANY-20878815

PATIENT
  Age: 68 Year
  Sex: Female

DRUGS (5)
  1. ELIQUIS [Suspect]
     Indication: CEREBROVASCULAR ACCIDENT PROPHYLAXIS
     Route: 048
     Dates: start: 20140407, end: 20140529
  2. SYNTHROID [Concomitant]
  3. FLONASE [Concomitant]
  4. METOPROLOL [Concomitant]
  5. DILTIAZEM HCL [Concomitant]

REACTIONS (2)
  - Confusional state [Unknown]
  - Fatigue [Unknown]
